FAERS Safety Report 5612856-5 (Version None)
Quarter: 2008Q1

REPORT INFORMATION
  Report Type: 
  Country: None (occurrence: None)
  Receive Date: 20080204
  Receipt Date: 20080123
  Transmission Date: 20080703
  Serious: Yes (Death)
  Sender: FDA-Public Use
  Company Number: IT-GENENTECH-254722

PATIENT
  Sex: Male

DRUGS (5)
  1. NUTROPIN AQ [Suspect]
     Indication: PITUITARY TUMOUR BENIGN
     Dosage: 0.2 MG, 7/WEEK
     Route: 058
     Dates: start: 20061211
  2. LASIX [Concomitant]
     Indication: DRUG USE FOR UNKNOWN INDICATION
     Dosage: UNK, QD
     Route: 048
     Dates: start: 20020101
  3. CORTONE [Concomitant]
     Indication: DRUG USE FOR UNKNOWN INDICATION
     Dosage: 1 UNK, QD
     Route: 048
     Dates: start: 20020101
  4. DEPAKENE [Concomitant]
     Indication: DRUG USE FOR UNKNOWN INDICATION
     Dosage: 2 UNK, QD
     Route: 048
     Dates: start: 20020101
  5. DINAPRES [Concomitant]
     Indication: DRUG USE FOR UNKNOWN INDICATION
     Dosage: 1 UNK, QD
     Route: 048
     Dates: start: 20020101

REACTIONS (1)
  - MULTIPLE MYELOMA [None]
